FAERS Safety Report 14151171 (Version 1)
Quarter: 2017Q4

REPORT INFORMATION
  Report Type: Report from Study
  Country: EC (occurrence: EC)
  Receive Date: 20171102
  Receipt Date: 20171102
  Transmission Date: 20180321
  Serious: Yes (Death, Hospitalization)
  Sender: FDA-Public Use
  Company Number: EC-ROCHE-1845168

PATIENT
  Sex: Female

DRUGS (1)
  1. MABTHERA [Suspect]
     Active Substance: RITUXIMAB
     Indication: PRODUCT USED FOR UNKNOWN INDICATION
     Route: 042
     Dates: start: 201508, end: 201610

REACTIONS (6)
  - Performance status decreased [Unknown]
  - Pain [Unknown]
  - Neutropenia [Recovering/Resolving]
  - Disease progression [Fatal]
  - Drug ineffective [Unknown]
  - Mood altered [Unknown]
